FAERS Safety Report 9307755 (Version 1)
Quarter: 2013Q2

REPORT INFORMATION
  Report Type: Spontaneous
  Country: IT (occurrence: IT)
  Receive Date: 20130524
  Receipt Date: 20130524
  Transmission Date: 20140414
  Serious: Yes (Hospitalization)
  Sender: FDA-Public Use
  Company Number: IT-NOVOPROD-378283

PATIENT
  Age: 92 Year
  Sex: Female

DRUGS (6)
  1. NOVONORM [Suspect]
     Indication: DIABETES MELLITUS
     Dosage: 1 TAB, QD
     Route: 048
  2. METFORMINA /00082701/ [Suspect]
     Indication: DIABETES MELLITUS
     Dosage: 500 MG, QD
     Route: 048
  3. IBUSTRIN                           /00730701/ [Concomitant]
  4. PROCAPTAN [Concomitant]
     Dosage: 5 MG, QD
     Route: 065
  5. CYMBALTA [Concomitant]
     Dosage: 1 TAB, QD
  6. MODURETIC [Concomitant]

REACTIONS (3)
  - Confusional state [Unknown]
  - Dysarthria [Unknown]
  - Hyperhidrosis [Unknown]
